FAERS Safety Report 9693520 (Version 2)
Quarter: 2014Q1

REPORT INFORMATION
  Report Type: Spontaneous
  Country: US (occurrence: US)
  Receive Date: 20131118
  Receipt Date: 20140203
  Transmission Date: 20141002
  Serious: Yes (Death, Other)
  Sender: FDA-Public Use
  Company Number: US-BAYER-2013-137667

PATIENT
  Age: 65 Year
  Sex: Male

DRUGS (1)
  1. CIPRO [Suspect]

REACTIONS (2)
  - Dyspnoea [None]
  - Death [Fatal]
